FAERS Safety Report 9698728 (Version 3)
Quarter: 2013Q4

REPORT INFORMATION
  Report Type: Spontaneous
  Country: IL (occurrence: None)
  Receive Date: 20131118
  Receipt Date: 20131213
  Transmission Date: 20140711
  Serious: Yes (Hospitalization)
  Sender: FDA-Public Use
  Company Number: SYM-2013-12777

PATIENT
  Age: 51 Year
  Sex: Female

DRUGS (9)
  1. 5- FU (FLUOROURACIL) [Suspect]
     Indication: COLORECTAL CANCER METASTATIC
     Route: 040
     Dates: start: 20131002, end: 20131002
  2. IRINOTECAN [Suspect]
     Indication: COLORECTAL CANCER METASTATIC
     Route: 041
     Dates: start: 20131002, end: 20131002
  3. LEUCOVORIN [Suspect]
     Route: 041
     Dates: start: 20131002, end: 20131002
  4. AFLIBERCEPT [Suspect]
     Indication: COLORECTAL CANCER METASTATIC
     Route: 041
     Dates: start: 20131002, end: 20131002
  5. DEXA [Concomitant]
  6. SEROTONIN ANTAGONISTS [Concomitant]
  7. OMEPRADEX (OMEPRAZOLE) [Concomitant]
  8. LOPERAMIDE(LOPERAMIDE) [Concomitant]
  9. GASTRO 40 (FAMOTIDINE) (FAMOTIDINE) [Concomitant]

REACTIONS (2)
  - Nephrotic syndrome [None]
  - Hypertension [None]
